FAERS Safety Report 8887835 (Version 2)
Quarter: 2013Q1

REPORT INFORMATION
  Report Type: Spontaneous
  Country: US (occurrence: US)
  Receive Date: 20121106
  Receipt Date: 20130109
  Transmission Date: 20140127
  Serious: Yes (Hospitalization, Other)
  Sender: FDA-Public Use
  Company Number: US-GILEAD-2012-0063832

PATIENT
  Age: 43 Year
  Sex: Female

DRUGS (1)
  1. LETAIRIS [Suspect]
     Indication: PULMONARY HYPERTENSION
     Dosage: 10 MG, QD
     Route: 048
     Dates: start: 20090804

REACTIONS (4)
  - Transient ischaemic attack [Recovered/Resolved]
  - Fluid retention [Unknown]
  - Thrombosis [Unknown]
  - Pneumonia [Unknown]
